FAERS Safety Report 23865961 (Version 2)
Quarter: 2024Q3

REPORT INFORMATION
  Report Type: Report from Study
  Country: IT (occurrence: IT)
  Receive Date: 20240517
  Receipt Date: 20240709
  Transmission Date: 20241017
  Serious: Yes (Hospitalization, Other)
  Sender: SERVIER
  Company Number: None

PATIENT

DRUGS (4)
  1. PEGASPARGASE [Suspect]
     Active Substance: PEGASPARGASE
     Indication: B-cell type acute leukaemia
     Dosage: 2110.00 IU INFUSION IN 100 ML NACL 0.9% IN 120 MIN.
     Route: 042
     Dates: start: 20240402, end: 20240402
  2. METHOTREXATE [Suspect]
     Active Substance: METHOTREXATE
     Indication: B-cell type acute leukaemia
     Dosage: 420.00 MG INFUSION IN 50 ML NACL0.9% IN 30 MIN. + 3795.00 MG INFUSION IN 750 ML NACL 0.9% IN 1410 MI
     Route: 042
     Dates: start: 20240328, end: 20240328
  3. CYCLOPHOSPHAMIDE [Suspect]
     Active Substance: CYCLOPHOSPHAMIDE
     Indication: B-cell type acute leukaemia
     Dosage: 168.50 MG INFUSION IN 100 ML SOL. 5% GLUCOSE IN 60 MIN. X 2 TIMES/DAY FROM 28/03 TO 30/03 (TOTAL 5 S
     Route: 042
     Dates: start: 20240328, end: 20240330
  4. CYTARABINE [Suspect]
     Active Substance: CYTARABINE
     Indication: B-cell type acute leukaemia
     Dosage: 1685.00 MG INFUSIONE IN 500 ML NACL 0.9% IN 180 MIN. X 2 VV/DIE
     Route: 042
     Dates: start: 20240331, end: 20240331

REACTIONS (8)
  - Febrile neutropenia [Recovered/Resolved]
  - Thrombocytopenia [Recovered/Resolved]
  - Leukopenia [Recovered/Resolved]
  - Alopecia [Not Recovered/Not Resolved]
  - Stomatitis [Recovered/Resolved]
  - Abdominal pain [Recovered/Resolved]
  - Decreased appetite [Unknown]
  - Cancer fatigue [Recovered/Resolved]

NARRATIVE: CASE EVENT DATE: 20240402
